FAERS Safety Report 7711742-4 (Version None)
Quarter: 2011Q3

REPORT INFORMATION
  Report Type: 
  Country: None (occurrence: None)
  Receive Date: 20110826
  Receipt Date: 20110802
  Transmission Date: 20111222
  Serious: No
  Sender: FDA-Public Use
  Company Number: US-BAYER-2011-068706

PATIENT
  Sex: Female

DRUGS (1)
  1. MIRENA [Suspect]
     Dosage: 20 ?G/D, CONT
     Route: 015
     Dates: start: 20110201

REACTIONS (2)
  - MENORRHAGIA [None]
  - HYPOMENORRHOEA [None]
